FAERS Safety Report 9571554 (Version 2)
Quarter: 2013Q4

REPORT INFORMATION
  Report Type: Spontaneous
  Country: US (occurrence: US)
  Receive Date: 20131001
  Receipt Date: 20131003
  Transmission Date: 20140711
  Serious: No
  Sender: FDA-Public Use
  Company Number: US-TEVA-434999USA

PATIENT
  Sex: Female

DRUGS (5)
  1. FENTORA [Suspect]
     Indication: PAIN
  2. ACTIQ [Suspect]
     Indication: PAIN
  3. MORPHINE [Concomitant]
     Indication: PAIN
  4. OXYCODONE [Concomitant]
     Indication: PAIN
  5. FENTANYL [Concomitant]
     Indication: PAIN

REACTIONS (11)
  - Rotator cuff syndrome [Not Recovered/Not Resolved]
  - Mental disorder [Not Recovered/Not Resolved]
  - Arthralgia [Not Recovered/Not Resolved]
  - Arthralgia [Not Recovered/Not Resolved]
  - Musculoskeletal pain [Not Recovered/Not Resolved]
  - Back pain [Not Recovered/Not Resolved]
  - Neck pain [Not Recovered/Not Resolved]
  - Arthropathy [Not Recovered/Not Resolved]
  - Movement disorder [Not Recovered/Not Resolved]
  - Off label use [Unknown]
  - Medication error [Unknown]
